FAERS Safety Report 9900155 (Version 3)
Quarter: 2014Q1

REPORT INFORMATION
  Report Type: Report from Study
  Country: JP (occurrence: JP)
  Receive Date: 20140214
  Receipt Date: 20140304
  Transmission Date: 20141002
  Serious: Yes (Death, Other)
  Sender: FDA-Public Use
  Company Number: JP-TAKEDA-2014TJP001519

PATIENT
  Age: 63 Year
  Sex: Male

DRUGS (7)
  1. ALOGLIPTIN [Suspect]
     Indication: TYPE 2 DIABETES MELLITUS
     Dosage: 25 MG, QD
     Route: 048
     Dates: start: 20130315, end: 20140117
  2. METGLUCO [Concomitant]
     Indication: TYPE 2 DIABETES MELLITUS
     Dosage: 500 MG, 1 DAYS
     Route: 048
  3. CONIEL [Concomitant]
     Dosage: 2 MG, 1 DAYS
     Route: 048
  4. DEPAS [Concomitant]
     Dosage: 1.5 MG, 1 DAYS
     Route: 048
  5. HALCION [Concomitant]
     Dosage: 0.25 MG, 1 DAYS
     Route: 048
  6. BENZALIN [Concomitant]
     Dosage: 5 MG,1 DAYS
     Route: 048
  7. LENDORMIN [Concomitant]
     Dosage: 0.25 MG,1 DAYS
     Route: 048

REACTIONS (1)
  - Subarachnoid haemorrhage [Fatal]
